FAERS Safety Report 9410566 (Version 1)
Quarter: 2013Q3

REPORT INFORMATION
  Report Type: Spontaneous
  Country: DE (occurrence: DE)
  Receive Date: 20130719
  Receipt Date: 20130719
  Transmission Date: 20140515
  Serious: Yes (Other)
  Sender: FDA-Public Use
  Company Number: DE-ELI_LILLY_AND_COMPANY-DE201307004650

PATIENT
  Sex: Female

DRUGS (13)
  1. EFIENT [Suspect]
     Indication: MYOCARDIAL INFARCTION
     Dosage: 10 MG, UNK
     Route: 048
     Dates: start: 2011
  2. BELOC ZOK [Concomitant]
     Dosage: 95 MG, UNK
  3. VALSARTAN [Concomitant]
  4. HYGROTON [Concomitant]
  5. RANEXA [Concomitant]
  6. PENTALONG [Concomitant]
     Dosage: 80 MG, UNK
  7. ASS [Concomitant]
     Dosage: 100 MG, UNK
  8. ATORVASTATIN [Concomitant]
     Dosage: 40 MG, UNK
  9. ALLOPURINOL [Concomitant]
     Dosage: 150 MG, UNK
  10. MAGNESIUM VERLA                    /00648601/ [Concomitant]
  11. RANITIDIN [Concomitant]
     Dosage: 300 MG, UNK
  12. LEVEMIR [Concomitant]
  13. NOVORAPID [Concomitant]

REACTIONS (1)
  - Myocardial infarction [Recovered/Resolved]
